FAERS Safety Report 4436635-X (Version None)
Quarter: 2004Q3

REPORT INFORMATION
  Report Type: 
  Country: None (occurrence: None)
  Receive Date: 20040830
  Receipt Date: 20040722
  Transmission Date: 20050211
  Serious: No
  Sender: FDA-Public Use
  Company Number: US-BRISTOL-MYERS SQUIBB COMPANY-12648762

PATIENT
  Age: 29 Year
  Sex: Male
  Weight: 59 kg

DRUGS (1)
  1. ABILIFY [Suspect]
     Indication: SCHIZOPHRENIA, PARANOID TYPE
     Dosage: INITIATED AT 15 MG/DAY; INC TO 20 MG/DAY ON 10-JUN-04, TAPERED, THEN DISCONTINUED ON 08-JUL-04
     Route: 048
     Dates: start: 20040603, end: 20040708

REACTIONS (1)
  - DYSARTHRIA [None]
